FAERS Safety Report 13284186 (Version 1)
Quarter: 2017Q1

REPORT INFORMATION
  Report Type: Spontaneous
  Country: US (occurrence: US)
  Receive Date: 20170301
  Receipt Date: 20170301
  Transmission Date: 20170428
  Serious: No
  Sender: FDA-Public Use
  Company Number: US-INSYS THERAPEUTICS, INC-INS201607-000353

PATIENT
  Sex: Male

DRUGS (3)
  1. SUBSYS [Suspect]
     Active Substance: FENTANYL
     Indication: ARACHNOIDITIS
     Route: 060
  2. SUBSYS [Suspect]
     Active Substance: FENTANYL
     Indication: BREAKTHROUGH PAIN
  3. FENTANYL. [Concomitant]
     Active Substance: FENTANYL

REACTIONS (5)
  - Oral discomfort [Not Recovered/Not Resolved]
  - Tooth erosion [Unknown]
  - Condition aggravated [Unknown]
  - Stomatitis [Not Recovered/Not Resolved]
  - Tooth loss [Unknown]
